FAERS Safety Report 5065939-5 (Version None)
Quarter: 2006Q3

REPORT INFORMATION
  Report Type: 
  Country: None (occurrence: None)
  Receive Date: 20060731
  Receipt Date: 20060720
  Transmission Date: 20061208
  Serious: Yes (Other)
  Sender: FDA-Public Use
  Company Number: PHBS2006BR11066

PATIENT
  Age: 69 Year
  Sex: Female

DRUGS (6)
  1. FORASEQ [Suspect]
     Indication: BRONCHOSPASM
  2. PREXIGE [Concomitant]
     Indication: BACK PAIN
     Dosage: 100 MG/DAY
     Route: 048
     Dates: start: 20060714, end: 20060716
  3. AVELOX [Concomitant]
     Indication: PNEUMONIA
     Route: 048
  4. METHOTREXATE [Concomitant]
     Dosage: 10 MG/WEEK
     Route: 048
  5. PREDNISONE [Concomitant]
     Dosage: 10 MG/DAY
  6. PREDNISONE [Concomitant]
     Dosage: 40 MG/DAY
     Dates: start: 20060717

REACTIONS (2)
  - ABDOMINAL PAIN UPPER [None]
  - CAROTID ARTERY DISEASE [None]
